FAERS Safety Report 12438639 (Version 1)
Quarter: 2016Q2

REPORT INFORMATION
  Report Type: Spontaneous
  Country: IN (occurrence: IN)
  Receive Date: 20160606
  Receipt Date: 20160606
  Transmission Date: 20160815
  Serious: Yes (Other)
  Sender: FDA-Public Use
  Company Number: IN-AKORN PHARMACEUTICALS-2016AKN00324

PATIENT
  Age: 2 Year
  Sex: Female

DRUGS (3)
  1. ISOTRETINOIN [Suspect]
     Active Substance: ISOTRETINOIN
     Indication: ICHTHYOSIS
     Dosage: 10 MG, UNK
     Route: 048
  2. UNSPECIFIED EMOLLIENTS [Concomitant]
     Route: 065
  3. UNSPECIFIED KERATOLYTICS [Concomitant]
     Route: 065

REACTIONS (2)
  - Rickets [Recovered/Resolved]
  - Vitamin D deficiency [Recovered/Resolved]
